FAERS Safety Report 10237695 (Version 1)
Quarter: 2014Q2

REPORT INFORMATION
  Report Type: Spontaneous
  Country: US (occurrence: None)
  Receive Date: 20140613
  Receipt Date: 20140613
  Transmission Date: 20141212
  Serious: No
  Sender: FDA-Public Use
  Company Number: None

PATIENT
  Age: 24 Year
  Sex: Female

DRUGS (1)
  1. LETAIRIS 10MG GILEAD [Suspect]
     Indication: PULMONARY ARTERIAL HYPERTENSION
     Route: 048
     Dates: start: 2012, end: 201405

REACTIONS (4)
  - Sinusitis [None]
  - Pharyngitis [None]
  - Nasal disorder [None]
  - Infection [None]
